FAERS Safety Report 18649093 (Version 1)
Quarter: 2020Q4

REPORT INFORMATION
  Report Type: Spontaneous
  Country: US (occurrence: US)
  Receive Date: 20201222
  Receipt Date: 20201222
  Transmission Date: 20210114
  Serious: Yes (Hospitalization, Other)
  Sender: FDA-Public Use
  Company Number: US-NOVOPROD-774996

PATIENT
  Sex: Male

DRUGS (1)
  1. OZEMPIC [Suspect]
     Active Substance: SEMAGLUTIDE
     Indication: GLUCOSE TOLERANCE IMPAIRED
     Dosage: UNK
     Route: 058

REACTIONS (6)
  - Toxicity to various agents [Unknown]
  - Injury [Unknown]
  - Staphylococcal infection [Unknown]
  - Blood glucose increased [Unknown]
  - Fatigue [Unknown]
  - Diabetes mellitus [Unknown]
